FAERS Safety Report 13125160 (Version 1)
Quarter: 2017Q1

REPORT INFORMATION
  Report Type: Spontaneous
  Country: FR (occurrence: FR)
  Receive Date: 20170118
  Receipt Date: 20170118
  Transmission Date: 20170428
  Serious: Yes (Other)
  Sender: FDA-Public Use
  Company Number: FR-PFIZER INC-2017012729

PATIENT
  Age: 31 Year
  Sex: Female

DRUGS (24)
  1. ZELITREX [Concomitant]
     Active Substance: VALACYCLOVIR HYDROCHLORIDE
     Indication: ANTIFUNGAL PROPHYLAXIS
     Dosage: 500 MG, 1X/DAY
     Route: 048
     Dates: start: 20151216
  2. AERIUS [Concomitant]
     Active Substance: DESLORATADINE
     Indication: URTICARIA
     Dosage: 5 MG, 1X/DAY
     Route: 048
     Dates: start: 20160510
  3. FEXOFENADINE [Concomitant]
     Active Substance: FEXOFENADINE\FEXOFENADINE HYDROCHLORIDE
     Indication: URTICARIA
     Dosage: 120 MG, 1X/DAY
     Route: 048
     Dates: start: 20160510
  4. VENTOLINE /00139501/ [Concomitant]
     Active Substance: ALBUTEROL
     Indication: COUGH
     Dosage: UNK
     Route: 055
     Dates: start: 20160701
  5. DUPHALAC [Concomitant]
     Active Substance: LACTULOSE
     Indication: CONSTIPATION
     Dosage: 20 G, DAILY
     Route: 048
     Dates: start: 20160914
  6. TRAMADOL HYDROCHLORIDE. [Concomitant]
     Active Substance: TRAMADOL HYDROCHLORIDE
     Indication: PAIN
     Dosage: 50 MG, EVERY 12 HOURS
     Route: 048
  7. PRIMPERAN [Concomitant]
     Active Substance: METOCLOPRAMIDE HYDROCHLORIDE
     Indication: NAUSEA
     Dosage: 10 MG UP TO THREE TIMES DAILY AS NEEDED
     Route: 048
  8. ADCETRIS [Suspect]
     Active Substance: BRENTUXIMAB VEDOTIN
     Indication: HODGKIN^S DISEASE
     Dosage: 1.8 MG/KG ON DAY1
     Route: 042
     Dates: start: 20161118
  9. JASMINELLE [Concomitant]
     Active Substance: DROSPIRENONE
     Indication: CONTRACEPTION
     Dosage: UNK, 1X/DAY
     Route: 048
     Dates: start: 20151110
  10. ZAMUDOL [Concomitant]
     Active Substance: TRAMADOL HYDROCHLORIDE
     Indication: MYALGIA
     Dosage: 100 MG, 1X/DAY
     Route: 048
     Dates: start: 20160902
  11. MICROLAX /01109601/ [Concomitant]
     Indication: CONSTIPATION
     Dosage: 1 TO 2 DOSAGE FORMS DAILY
     Route: 054
  12. TROPHIGIL [Concomitant]
     Active Substance: ESTRIOL
     Indication: VULVOVAGINAL DRYNESS
     Dosage: 3 DF, WEEKLY
     Route: 067
     Dates: start: 2007
  13. LEVOTHYROX [Concomitant]
     Active Substance: LEVOTHYROXINE
     Indication: HYPOTHYROIDISM
     Dosage: 25 UG, 1X/DAY
     Route: 048
     Dates: start: 20160310
  14. LYRICA [Concomitant]
     Active Substance: PREGABALIN
     Dosage: 100 MG, EVERY 12 HOURS
     Route: 048
  15. ATARAX [Concomitant]
     Active Substance: HYDROXYZINE HYDROCHLORIDE
     Dosage: 25 MG, 1X/DAY
     Route: 048
  16. LOVENOX [Concomitant]
     Active Substance: ENOXAPARIN SODIUM
     Dosage: 1 DF, DAILY
     Route: 058
  17. VALIUM [Concomitant]
     Active Substance: DIAZEPAM
     Indication: MYALGIA
     Dosage: 2 MG, 1X/DAY
     Route: 048
     Dates: start: 20160902, end: 20160903
  18. BENDAMUSTINE HYDROCHLORIDE. [Suspect]
     Active Substance: BENDAMUSTINE HYDROCHLORIDE
     Indication: HODGKIN^S DISEASE
     Dosage: 120 MG/M2 ON DAY 1
     Route: 042
     Dates: start: 20161118
  19. SYMBICORT [Concomitant]
     Active Substance: BUDESONIDE\FORMOTEROL FUMARATE DIHYDRATE
     Indication: COUGH
     Dosage: 2 DF, DAILY
     Route: 055
     Dates: start: 20160701
  20. LANSOPRAZOLE. [Concomitant]
     Active Substance: LANSOPRAZOLE
     Dosage: 15 MG, 1X/DAY
     Route: 048
  21. SPASFON /00765801/ [Concomitant]
     Active Substance: PHLOROGLUCINOL\1,3,5-TRIMETHOXYBENZENE
     Indication: ABDOMINAL PAIN
     Dosage: 2 DF, 3X/DAY (AS NEEDED)
     Route: 051
  22. SOLU-MEDROL [Suspect]
     Active Substance: METHYLPREDNISOLONE SODIUM SUCCINATE
     Indication: HODGKIN^S DISEASE
     Dosage: 1 MG/KG ON DAY 1 AND 2
     Route: 042
     Dates: start: 20161118
  23. TROPHICREME [Concomitant]
     Indication: VULVOVAGINAL DRYNESS
     Dosage: UNK, 1X/DAY (ONE APPLICATION DAILY)
     Route: 067
     Dates: start: 2007
  24. CODOLIPRANE [Concomitant]
     Active Substance: ACETAMINOPHEN\CODEINE PHOSPHATE
     Indication: MYALGIA
     Dosage: UNK
     Route: 048
     Dates: start: 201608

REACTIONS (3)
  - Paraesthesia [Recovered/Resolved]
  - Hypercalcaemia [Recovered/Resolved]
  - Nausea [Recovered/Resolved]

NARRATIVE: CASE EVENT DATE: 20161121
